FAERS Safety Report 25584360 (Version 2)
Quarter: 2025Q3

REPORT INFORMATION
  Report Type: Spontaneous
  Country: JP (occurrence: JP)
  Receive Date: 20250721
  Receipt Date: 20250911
  Transmission Date: 20251020
  Serious: Yes (Hospitalization, Other)
  Sender: JAZZ
  Company Number: JP-JAZZ PHARMACEUTICALS-2025-JP-017736

PATIENT
  Age: 74 Year
  Sex: Female

DRUGS (1)
  1. VYXEOS [Suspect]
     Active Substance: CYTARABINE\DAUNORUBICIN
     Indication: Acute myeloid leukaemia
     Dates: start: 20250425, end: 20250502

REACTIONS (6)
  - Febrile neutropenia [Recovered/Resolved]
  - Fall [Unknown]
  - Compression fracture [Unknown]
  - Staphylococcal sepsis [Unknown]
  - Septic shock [Unknown]
  - Rash [Unknown]

NARRATIVE: CASE EVENT DATE: 20250101
